FAERS Safety Report 21509330 (Version 1)
Quarter: 2022Q4

REPORT INFORMATION
  Report Type: Report from Study
  Country: US (occurrence: US)
  Receive Date: 20221026
  Receipt Date: 20221026
  Transmission Date: 20230112
  Serious: Yes (Hospitalization, Other)
  Sender: FDA-Public Use
  Company Number: US-INCYTE CORPORATION-2022IN009683

PATIENT

DRUGS (3)
  1. JAKAFI [Suspect]
     Active Substance: RUXOLITINIB
     Indication: Chronic graft versus host disease
     Dosage: UNK
     Route: 065
  2. PREDNISONE [Suspect]
     Active Substance: PREDNISONE
     Indication: Product used for unknown indication
     Dosage: UNK
     Route: 065
  3. SIROLIMUS [Concomitant]
     Active Substance: SIROLIMUS
     Indication: Product used for unknown indication
     Route: 065

REACTIONS (16)
  - Contrast media reaction [Unknown]
  - Bronchiolitis obliterans syndrome [Unknown]
  - Suicidal ideation [Unknown]
  - Immunodeficiency [Unknown]
  - Graft versus host disease [Not Recovered/Not Resolved]
  - Oropharyngeal pain [Unknown]
  - Oral pain [Unknown]
  - Blood disorder [Unknown]
  - Eye disorder [Unknown]
  - Oral mucosal blistering [Not Recovered/Not Resolved]
  - Full blood count abnormal [Unknown]
  - Crying [Unknown]
  - Aggression [Unknown]
  - Mobility decreased [Unknown]
  - Fatigue [Unknown]
  - Condition aggravated [Not Recovered/Not Resolved]

NARRATIVE: CASE EVENT DATE: 20221001
